FAERS Safety Report 22527672 (Version 1)
Quarter: 2023Q2

REPORT INFORMATION
  Report Type: Spontaneous
  Country: HU (occurrence: HU)
  Receive Date: 20230606
  Receipt Date: 20230606
  Transmission Date: 20230722
  Serious: Yes (Other)
  Sender: FDA-Public Use
  Company Number: HU-TEVA-2023-HU-2847064

PATIENT
  Age: 61 Year
  Sex: Female

DRUGS (5)
  1. IMATINIB [Suspect]
     Active Substance: IMATINIB
     Indication: Chronic myeloid leukaemia
     Dosage: UNK UNK, UNKNOWN
     Route: 065
     Dates: start: 2003
  2. IMATINIB [Suspect]
     Active Substance: IMATINIB
     Dosage: 300 MG, QD (DOSE WAS REDUCED)
     Route: 065
  3. DESMOPRESSIN [Concomitant]
     Active Substance: DESMOPRESSIN
     Indication: Hypopituitarism
     Dosage: UNK UNK, UNKNOWN
     Route: 065
     Dates: start: 2006
  4. HYDROCORTISONE [Concomitant]
     Active Substance: HYDROCORTISONE
     Indication: Hypopituitarism
     Dosage: UNK, UNKNOWN
     Route: 065
     Dates: start: 2006
  5. LEVOTHYROXINE [Concomitant]
     Active Substance: LEVOTHYROXINE
     Indication: Hypopituitarism
     Dosage: UNK, UNKNOWN
     Route: 065
     Dates: start: 2006

REACTIONS (3)
  - Chronic kidney disease [Unknown]
  - Iron deficiency anaemia [Unknown]
  - Oral pigmentation [Not Recovered/Not Resolved]

NARRATIVE: CASE EVENT DATE: 20170101
